FAERS Safety Report 8495399-3 (Version None)
Quarter: 2012Q2

REPORT INFORMATION
  Report Type: 
  Country: None (occurrence: None)
  Receive Date: 20120628
  Receipt Date: 20120615
  Transmission Date: 20120825
  Serious: Yes (Hospitalization, Other)
  Sender: FDA-Public Use
  Company Number: CIP11000589

PATIENT
  Age: 64 Year
  Sex: Female
  Weight: 55.8 kg

DRUGS (14)
  1. IBUPROFEN (ADVIL) [Concomitant]
  2. ACTONEL [Suspect]
     Indication: OSTEOPOROSIS
     Dosage: 5 MG DAILY, ORAL
     Route: 048
     Dates: start: 20030303, end: 20051001
  3. FOSAMAX PLUS D [Suspect]
     Indication: OSTEOPOROSIS
     Dosage: 70 MG ONCE WEEKLY, ORAL
     Route: 048
     Dates: start: 20070308, end: 20090101
  4. ASCORBIC ACID [Concomitant]
  5. BETA CAROTENE (BETACAROTENE) [Concomitant]
  6. GLUCOSAMINE (GLUCISAMINE) [Concomitant]
  7. BLACK COHOSH (CIMICIFUGA RACEMOSA ROOT) [Concomitant]
  8. ALLEGRA [Concomitant]
  9. ADVAIR HFA [Concomitant]
  10. FLONASE [Concomitant]
  11. CALCIUM CARBONATE [Concomitant]
  12. VITAMIN E (ECHINACEA PURPUREA) [Concomitant]
  13. HERBAL PREPARATION [Concomitant]
  14. MIACALCIN [Concomitant]

REACTIONS (15)
  - OSTEOGENESIS IMPERFECTA [None]
  - MUSCULOSKELETAL PAIN [None]
  - FEMUR FRACTURE [None]
  - LOW TURNOVER OSTEOPATHY [None]
  - BONE DISORDER [None]
  - BONE PAIN [None]
  - ARTHRALGIA [None]
  - DYSSTASIA [None]
  - LIMB ASYMMETRY [None]
  - FRACTURE DELAYED UNION [None]
  - STRESS FRACTURE [None]
  - FALL [None]
  - PAIN IN EXTREMITY [None]
  - OEDEMA PERIPHERAL [None]
  - ANAEMIA POSTOPERATIVE [None]
